FAERS Safety Report 9321343 (Version 2)
Quarter: 2013Q3

REPORT INFORMATION
  Report Type: Spontaneous
  Country: IT (occurrence: IT)
  Receive Date: 20130531
  Receipt Date: 20130730
  Transmission Date: 20140515
  Serious: Yes (Life-Threatening)
  Sender: FDA-Public Use
  Company Number: IT-PFIZER INC-2013165212

PATIENT
  Age: 44 Year
  Sex: Male

DRUGS (11)
  1. ZAVEDOS [Suspect]
     Indication: ACUTE MYELOID LEUKAEMIA
     Dosage: 21 MG, 1X/DAY
     Route: 042
     Dates: start: 20121109, end: 20121111
  2. CYTARABINE [Suspect]
     Indication: ACUTE MYELOID LEUKAEMIA (IN REMISSION)
     Dosage: 10600 MG, 1X/DAY
     Route: 042
     Dates: start: 20121109, end: 20121111
  3. ALLOPURINOL [Concomitant]
     Indication: HYPERURICAEMIA
     Dosage: 300 MG, UNK
     Route: 048
     Dates: start: 20121107, end: 20121117
  4. DECADRON [Concomitant]
     Dosage: 2 DF, UNK
     Route: 042
  5. LASIX [Concomitant]
     Dosage: 1 DF, UNK
     Route: 042
     Dates: start: 20121109, end: 20121112
  6. VISUMETAZONE [Concomitant]
     Indication: PROPHYLAXIS
     Dosage: 3 GTT, UNK
     Route: 047
     Dates: start: 20121109, end: 20121112
  7. PARIET [Concomitant]
     Indication: GASTRITIS
     Dosage: 40 MG, UNK
     Route: 048
     Dates: start: 20121102, end: 20121201
  8. SPIRIVA [Concomitant]
     Dosage: 1 DF, UNK
     Route: 055
     Dates: start: 20121102, end: 20121201
  9. FOLINA [Concomitant]
     Dosage: 1 DF, UNK
     Route: 048
     Dates: start: 20121102, end: 20121201
  10. ZOFRAN [Concomitant]
     Indication: PROPHYLAXIS OF NAUSEA AND VOMITING
     Dosage: 1 DF, UNK
     Route: 042
     Dates: start: 20121109, end: 20121111
  11. EUTIROX [Concomitant]
     Indication: HYPOTHYROIDISM
     Dosage: 1 DF, UNK
     Route: 048
     Dates: start: 20121102, end: 20121201

REACTIONS (2)
  - Shock [Recovered/Resolved]
  - Febrile bone marrow aplasia [Recovered/Resolved]
